FAERS Safety Report 5578798-9 (Version None)
Quarter: 2008Q1

REPORT INFORMATION
  Report Type: 
  Country: None (occurrence: None)
  Receive Date: 20080102
  Receipt Date: 20071227
  Transmission Date: 20080703
  Serious: Yes (Death, Hospitalization)
  Sender: FDA-Public Use
  Company Number: JP-AVENTIS-200713247JP

PATIENT
  Age: 45 Year
  Sex: Male
  Weight: 74 kg

DRUGS (5)
  1. TAXOTERE [Suspect]
     Route: 041
     Dates: start: 20060411, end: 20060607
  2. TAXOTERE [Suspect]
     Route: 041
     Dates: start: 20060711, end: 20061017
  3. DECADRON [Concomitant]
     Route: 041
     Dates: start: 20060411, end: 20061017
  4. ZANTAC [Concomitant]
     Route: 041
     Dates: start: 20060411, end: 20061017
  5. POLARAMINE [Concomitant]
     Route: 041
     Dates: start: 20060411, end: 20061017

REACTIONS (2)
  - ADENOCARCINOMA [None]
  - INTERSTITIAL LUNG DISEASE [None]
